FAERS Safety Report 4605122-8 (Version None)
Quarter: 2005Q1

REPORT INFORMATION
  Report Type: 
  Country: None (occurrence: None)
  Receive Date: 20050311
  Receipt Date: 20050301
  Transmission Date: 20050727
  Serious: Yes (Other)
  Sender: FDA-Public Use
  Company Number: US-NOVOPROD-242664

PATIENT
  Age: 55 Year
  Sex: Female

DRUGS (2)
  1. VAGIFEM [Suspect]
     Indication: VULVOVAGINAL DRYNESS
     Dosage: 1 TAB, QD
     Route: 067
     Dates: start: 20041201, end: 20041201
  2. VAGIFEM [Suspect]
     Dosage: 1 TAB THREE TIMES A WEEK
     Route: 067
     Dates: start: 20041201

REACTIONS (2)
  - INFLAMMATION [None]
  - MOUTH ULCERATION [None]
